FAERS Safety Report 15076909 (Version 1)
Quarter: 2018Q2

REPORT INFORMATION
  Report Type: Report from Study
  Country: US (occurrence: US)
  Receive Date: 20180627
  Receipt Date: 20180627
  Transmission Date: 20180711
  Serious: Yes (Hospitalization)
  Sender: FDA-Public Use
  Company Number: US-GILEAD-2018-0342567

PATIENT
  Age: 56 Year
  Sex: Male

DRUGS (2)
  1. LEDIPASVIR/SOFOSBUVIR [Suspect]
     Active Substance: LEDIPASVIR\SOFOSBUVIR
     Indication: CHRONIC HEPATITIS C
     Dosage: 1 DF, QD
     Route: 048
     Dates: start: 20180514, end: 20180520
  2. LEDIPASVIR/SOFOSBUVIR [Suspect]
     Active Substance: LEDIPASVIR\SOFOSBUVIR
     Dosage: 1 DF, QD
     Route: 048
     Dates: start: 20180521

REACTIONS (24)
  - Feeling abnormal [Unknown]
  - Headache [Unknown]
  - Retching [Unknown]
  - Confusional state [Unknown]
  - Tooth abscess [Unknown]
  - Pyrexia [Not Recovered/Not Resolved]
  - Tooth infection [Unknown]
  - Gingivitis [Unknown]
  - Mental impairment [Unknown]
  - Migraine [Unknown]
  - Toothache [Unknown]
  - Hyperacusis [Unknown]
  - Night sweats [Unknown]
  - Drug dose omission [Recovered/Resolved]
  - Accidental overdose [Recovered/Resolved]
  - Somnolence [Unknown]
  - Nausea [Unknown]
  - Feeding disorder [Unknown]
  - Chills [Unknown]
  - Cold sweat [Unknown]
  - Vomiting [Unknown]
  - Malaise [Unknown]
  - Nausea [Not Recovered/Not Resolved]
  - Photophobia [Unknown]

NARRATIVE: CASE EVENT DATE: 2018
